FAERS Safety Report 13521409 (Version 12)
Quarter: 2018Q4

REPORT INFORMATION
  Report Type: Report from Study
  Country: US (occurrence: US)
  Receive Date: 20170508
  Receipt Date: 20181011
  Transmission Date: 20190204
  Serious: Yes (Hospitalization, Other)
  Sender: FDA-Public Use
  Company Number: PHHO2017US006957

PATIENT
  Age: 82 Year
  Sex: Male
  Weight: 72.47 kg

DRUGS (27)
  1. DIGOXIN. [Suspect]
     Active Substance: DIGOXIN
     Indication: PRODUCT USED FOR UNKNOWN INDICATION
     Dosage: UNK, NO TREATMENT
     Route: 065
  2. HYDRALAZINE [Concomitant]
     Active Substance: HYDRALAZINE HYDROCHLORIDE
     Indication: HYPERTENSION
     Dosage: 100 MG, TID
     Route: 048
     Dates: start: 20170411, end: 20170413
  3. HYDRALAZINE [Concomitant]
     Active Substance: HYDRALAZINE HYDROCHLORIDE
     Dosage: 50 MG, TID
     Route: 048
     Dates: start: 20170413, end: 20170415
  4. FUROSEMIDE. [Suspect]
     Active Substance: FUROSEMIDE
     Dosage: UNK
     Route: 042
  5. DIGOXIN. [Suspect]
     Active Substance: DIGOXIN
     Dosage: UNK
     Route: 065
     Dates: start: 20170510
  6. WARFARIN [Suspect]
     Active Substance: WARFARIN
     Indication: PRODUCT USED FOR UNKNOWN INDICATION
     Route: 065
  7. AMIODARONE [Concomitant]
     Active Substance: AMIODARONE
     Indication: PRODUCT USED FOR UNKNOWN INDICATION
     Dosage: 400 MG, QD
     Route: 048
  8. ENTRESTO [Suspect]
     Active Substance: SACUBITRIL\VALSARTAN
     Indication: CARDIAC FAILURE ACUTE
     Dosage: UNK
     Route: 048
     Dates: start: 20170414, end: 20170416
  9. LCZ696 [Suspect]
     Active Substance: SACUBITRIL\VALSARTAN
     Indication: CARDIAC FAILURE ACUTE
     Route: 048
  10. DOCUSATE [Concomitant]
     Active Substance: DOCUSATE
     Indication: PRODUCT USED FOR UNKNOWN INDICATION
     Dosage: 100 MG, BID
     Route: 048
  11. ISORDIL [Concomitant]
     Active Substance: ISOSORBIDE DINITRATE
     Dosage: 10 MG, TID
     Route: 048
     Dates: start: 20170413, end: 20170415
  12. TORSEMIDE. [Suspect]
     Active Substance: TORSEMIDE
     Dosage: 20 MG, QD
     Route: 048
     Dates: start: 20170416, end: 20170421
  13. HYDRALAZINE [Concomitant]
     Active Substance: HYDRALAZINE HYDROCHLORIDE
     Dosage: UNK
     Route: 048
     Dates: start: 20170415
  14. OXYCODONE [Concomitant]
     Active Substance: OXYCODONE
     Indication: PRODUCT USED FOR UNKNOWN INDICATION
     Dosage: 5 MG, BID
     Route: 048
  15. RAMELTEON [Concomitant]
     Active Substance: RAMELTEON
     Indication: PRODUCT USED FOR UNKNOWN INDICATION
     Dosage: 8 MG
     Route: 048
  16. FUROSEMIDE. [Suspect]
     Active Substance: FUROSEMIDE
     Dosage: 250 MG, CONTINUOUS (2 ML/HR)
     Route: 042
     Dates: start: 20170412, end: 20170415
  17. BUMETANIDE. [Suspect]
     Active Substance: BUMETANIDE
     Indication: PRODUCT USED FOR UNKNOWN INDICATION
     Route: 065
  18. POLYETHYLENE GLYCOL 3350. [Concomitant]
     Active Substance: POLYETHYLENE GLYCOL 3350
     Indication: PRODUCT USED FOR UNKNOWN INDICATION
     Dosage: 1 DF, QD
     Route: 048
  19. MIRTAZAPINE. [Concomitant]
     Active Substance: MIRTAZAPINE
     Indication: PRODUCT USED FOR UNKNOWN INDICATION
     Dosage: 15 MG, QD
     Route: 048
  20. SENNA [Concomitant]
     Active Substance: SENNA LEAF\SENNOSIDES\SENNOSIDES A AND B
     Indication: PRODUCT USED FOR UNKNOWN INDICATION
     Dosage: 17.2 MG, BID
     Route: 048
  21. ISORDIL [Concomitant]
     Active Substance: ISOSORBIDE DINITRATE
     Indication: VASOCONSTRICTION
     Dosage: 30 MG, TID
     Route: 048
     Dates: start: 20170411, end: 20170413
  22. PLACEBO [Suspect]
     Active Substance: UNSPECIFIED INGREDIENT
     Indication: CARDIAC FAILURE CHRONIC
     Dosage: UNK
     Route: 048
     Dates: start: 20170414, end: 20170416
  23. TORSEMIDE. [Suspect]
     Active Substance: TORSEMIDE
     Indication: CARDIAC FAILURE
     Dosage: UNK, NO TREATMENT
     Route: 065
  24. POTASSIUM CHLORIDE. [Concomitant]
     Active Substance: POTASSIUM CHLORIDE
     Indication: CARDIAC FAILURE
     Dosage: 20 MEQ, QD
     Route: 048
     Dates: start: 20170418, end: 20170422
  25. FUROSEMIDE. [Suspect]
     Active Substance: FUROSEMIDE
     Indication: HYPERVOLAEMIA
     Dosage: 80 MG, CONTINUOUS (10 MG/ML)
     Route: 042
     Dates: start: 20170411, end: 20170411
  26. FUROSEMIDE. [Suspect]
     Active Substance: FUROSEMIDE
     Dosage: 250 MG, CONTINUOUS (1 ML/HR)
     Route: 042
     Dates: start: 20170415, end: 20170416
  27. ISOSORBIDE DINITRATE. [Concomitant]
     Active Substance: ISOSORBIDE DINITRATE
     Indication: PRODUCT USED FOR UNKNOWN INDICATION
     Dosage: 60 MG, TID
     Route: 048

REACTIONS (6)
  - Renal impairment [Recovered/Resolved]
  - Acute kidney injury [Recovered/Resolved]
  - Cardiac failure congestive [Recovered/Resolved]
  - Basal cell carcinoma [Not Recovered/Not Resolved]
  - Hypotension [Recovered/Resolved]
  - Hyperkalaemia [Recovered/Resolved]

NARRATIVE: CASE EVENT DATE: 20170415
